FAERS Safety Report 21911238 (Version 10)
Quarter: 2025Q4

REPORT INFORMATION
  Report Type: Report from Study
  Country: US (occurrence: US)
  Receive Date: 20230125
  Receipt Date: 20251111
  Transmission Date: 20260118
  Serious: Yes (Hospitalization, Other)
  Sender: JAZZ
  Company Number: US-JAZZ-2023-US-001387

PATIENT
  Sex: Female

DRUGS (32)
  1. XYWAV [Suspect]
     Active Substance: CALCIUM OXYBATE\MAGNESIUM OXYBATE\POTASSIUM OXYBATE\SODIUM OXYBATE
     Indication: Narcolepsy
     Dosage: 4.5 GRAM, BID
  2. XYREM [Suspect]
     Active Substance: SODIUM OXYBATE
     Indication: Narcolepsy
     Dosage: UNK
  3. XYREM [Suspect]
     Active Substance: SODIUM OXYBATE
     Dosage: 4.5 GRAM, BID (4.5 GRAM AT BEDTIME AND 4.5 G TWO AND A HALF TO FOUR HOURS LATER)
  4. CYMBALTA [Suspect]
     Active Substance: DULOXETINE HYDROCHLORIDE
     Indication: Product used for unknown indication
     Dosage: UNK
  5. ADDERALL [Suspect]
     Active Substance: AMPHETAMINE ASPARTATE\AMPHETAMINE SULFATE\DEXTROAMPHETAMINE SACCHARATE\DEXTROAMPHETAMINE SULFATE
     Indication: Product used for unknown indication
     Dosage: UNK
  6. LOVASTATIN [Concomitant]
     Active Substance: LOVASTATIN
     Indication: Product used for unknown indication
     Dosage: TAKE 1 TABLET BY MOUTH
  7. GLIPIZIDE [Concomitant]
     Active Substance: GLIPIZIDE
     Indication: Product used for unknown indication
     Dosage: TAKE 2 TABLETS 2 TIMES DAILY (BEFORE MEALS) PRN
  8. LITHIUM CARBONATE [Concomitant]
     Active Substance: LITHIUM CARBONATE
     Indication: Product used for unknown indication
     Dosage: UNK
  9. ASPIRIN [Concomitant]
     Active Substance: ASPIRIN
     Indication: Product used for unknown indication
     Dosage: TAKE 1 TABLET DAILY
  10. IBUPROFEN [Concomitant]
     Active Substance: IBUPROFEN
     Indication: Product used for unknown indication
     Dosage: UNK
  11. GABAPENTIN [Concomitant]
     Active Substance: GABAPENTIN
     Indication: Product used for unknown indication
     Dosage: TAKE 4 CAPSULES, 1 CAPSULE IN THE MORNING AND 3 AT NIGHT
     Dates: start: 20180601
  12. ALLOPURINOL [Concomitant]
     Active Substance: ALLOPURINOL
     Indication: Product used for unknown indication
     Dosage: 100 MILLIGRAM, TAKE 3 TABLETS AT BETTIME
  13. COLCHICINE [Concomitant]
     Active Substance: COLCHICINE
     Indication: Product used for unknown indication
     Dosage: UNK
  14. TOPIRAMATE [Concomitant]
     Active Substance: TOPIRAMATE
     Indication: Product used for unknown indication
     Dosage: UNK
  15. NORCO [Concomitant]
     Active Substance: ACETAMINOPHEN\HYDROCODONE BITARTRATE
     Indication: Product used for unknown indication
     Dosage: 10-325
  16. DICLOFENAC [Concomitant]
     Active Substance: DICLOFENAC
     Indication: Product used for unknown indication
     Dosage: UNK
  17. K TAB [Concomitant]
     Indication: Product used for unknown indication
     Dosage: 10 MEQ TABLET
  18. VITAMINS [Concomitant]
     Active Substance: VITAMINS
     Indication: Product used for unknown indication
     Dosage: UNK
  19. MAGNESIUM [Concomitant]
     Active Substance: MAGNESIUM
     Indication: Product used for unknown indication
     Dosage: UNK
  20. TIZANIDINE HYDROCHLORIDE [Concomitant]
     Active Substance: TIZANIDINE HYDROCHLORIDE
     Indication: Product used for unknown indication
     Dosage: UNK
  21. BENAZEPRIL [Concomitant]
     Active Substance: BENAZEPRIL HYDROCHLORIDE
     Indication: Product used for unknown indication
     Dosage: UNK
  22. GLUCAGON [Concomitant]
     Active Substance: GLUCAGON
     Indication: Product used for unknown indication
  23. INSULIN BEEF [Concomitant]
     Active Substance: INSULIN BEEF
     Indication: Product used for unknown indication
     Dosage: INJECT 15 UNITS INTO THE SKIN EVERY MORNING
  24. INSULIN BEEF [Concomitant]
     Active Substance: INSULIN BEEF
     Dosage: INJECT 30 UNITS INTO THE SKIN EVERY MORNING
  25. IVERMECTIN [Concomitant]
     Active Substance: IVERMECTIN
     Indication: Rosacea
     Dosage: UNK
  26. CLARITIN-D NOS [Concomitant]
     Active Substance: LORATADINE\PSEUDOEPHEDRINE SULFATE
     Indication: Product used for unknown indication
     Dosage: TAKE 1 TABLET DAILY
  27. GLUCOPHAGE [Concomitant]
     Active Substance: METFORMIN HYDROCHLORIDE
     Indication: Product used for unknown indication
     Dosage: TAKE 2 TABLETS 2 TIMES DAILY WITH MEALS
  28. ROXICODONE [Concomitant]
     Active Substance: OXYCODONE HYDROCHLORIDE
     Indication: Pain
     Dosage: TAKE 1 TABLET EVERY 6 HOURS AS NEEDED
  29. ACETAMINOPHEN\OXYCODONE HYDROCHLORIDE\OXYCODONE TEREPHTHALATE [Concomitant]
     Active Substance: ACETAMINOPHEN\OXYCODONE HYDROCHLORIDE\OXYCODONE TEREPHTHALATE
     Indication: Pain
     Dosage: TAKE 1 TABLET EVERY 6 HOURS AS NEEDED
  30. SUNOSI [Concomitant]
     Active Substance: SOLRIAMFETOL
     Indication: Narcolepsy
     Dosage: TAKE 1 TABLET FOR 180 DOSES
  31. BACTRIM DS [Concomitant]
     Active Substance: SULFAMETHOXAZOLE\TRIMETHOPRIM
     Indication: Skin infection
     Dosage: TAKE 2 TABLETS 2 TIMES DAILY FOR 10 DAYS
  32. GLUCOCIL [Concomitant]
     Indication: Product used for unknown indication
     Dosage: 1 CAPSULE WITH LUNCH PRN, 2 CAPSULES WITH DINNER AND 1 CAPSULE AT BED TIME

REACTIONS (13)
  - Gangrene [Unknown]
  - Surgery [Unknown]
  - Oral surgery [Unknown]
  - Suicidal ideation [Unknown]
  - Depression [Unknown]
  - Headache [Unknown]
  - Injury [Unknown]
  - Fungal infection [Unknown]
  - Rosacea [Unknown]
  - VIIIth nerve injury [Unknown]
  - Plantar fasciitis [Unknown]
  - Tendonitis [Unknown]
  - Dry mouth [Unknown]

NARRATIVE: CASE EVENT DATE: 20210101
